FAERS Safety Report 13470244 (Version 1)
Quarter: 2017Q2

REPORT INFORMATION
  Report Type: Spontaneous
  Country: US (occurrence: US)
  Receive Date: 20170421
  Receipt Date: 20170421
  Transmission Date: 20170830
  Serious: Yes (Other)
  Sender: FDA-Public Use
  Company Number: None

PATIENT
  Age: 57 Year
  Sex: Male
  Weight: 74 kg

DRUGS (1)
  1. GAMMAGARD [Suspect]
     Active Substance: HUMAN IMMUNOGLOBULIN G
     Indication: NERVOUS SYSTEM DISORDER
     Route: 042
     Dates: start: 20170406, end: 20170406

REACTIONS (11)
  - Gait disturbance [None]
  - Headache [None]
  - Vomiting [None]
  - Chills [None]
  - Hallucination [None]
  - Hyperhidrosis [None]
  - Epistaxis [None]
  - Pyrexia [None]
  - Diarrhoea [None]
  - Pain [None]
  - Nausea [None]

NARRATIVE: CASE EVENT DATE: 20170406
